FAERS Safety Report 21656645 (Version 2)
Quarter: 2023Q1

REPORT INFORMATION
  Report Type: Spontaneous
  Country: US (occurrence: US)
  Receive Date: 20221129
  Receipt Date: 20230221
  Transmission Date: 20230418
  Serious: No
  Sender: FDA-Public Use
  Company Number: US-BRISTOL-MYERS SQUIBB COMPANY-2022-144282

PATIENT
  Age: 56 Year
  Sex: Female

DRUGS (2)
  1. REVLIMID [Suspect]
     Active Substance: LENALIDOMIDE
     Indication: Plasma cell myeloma
     Dosage: FREQUENCY: OTHER
     Route: 048
     Dates: start: 20180129
  2. REVLIMID [Suspect]
     Active Substance: LENALIDOMIDE
     Dosage: ONCE DAILY FOR 21 DAYS ON AND 7 DAYS OFF
     Route: 048
     Dates: start: 20221005

REACTIONS (4)
  - Illness [Unknown]
  - Off label use [Unknown]
  - Bronchitis [Unknown]
  - Malaise [Unknown]

NARRATIVE: CASE EVENT DATE: 20221115
